FAERS Safety Report 15637539 (Version 3)
Quarter: 2019Q3

REPORT INFORMATION
  Report Type: Spontaneous
  Country: US (occurrence: US)
  Receive Date: 20181120
  Receipt Date: 20190819
  Transmission Date: 20191004
  Serious: No
  Sender: FDA-Public Use
  Company Number: US-JNJFOC-20180517668

PATIENT
  Age: 79 Year
  Sex: Female

DRUGS (20)
  1. IMBRUVICA [Suspect]
     Active Substance: IBRUTINIB
     Route: 048
  2. CENTRUM SILVER [Concomitant]
     Active Substance: MINERALS\VITAMINS
  3. UBIDECARENONE [Concomitant]
     Active Substance: UBIDECARENONE
  4. VITAMIN C [Concomitant]
     Active Substance: ASCORBIC ACID
  5. VITAMIN B12 [Concomitant]
     Active Substance: CYANOCOBALAMIN
  6. LEVOCARNITINE. [Concomitant]
     Active Substance: LEVOCARNITINE
  7. RESVERATROL [Concomitant]
     Active Substance: DIETARY SUPPLEMENT\RESVERATROL
  8. ELEUTHEROCOCCUS SENTICOSUS [Concomitant]
     Active Substance: ELEUTHERO\HERBALS
  9. MAGNESIUM [Concomitant]
     Active Substance: MAGNESIUM
  10. IMBRUVICA [Suspect]
     Active Substance: IBRUTINIB
     Indication: WALDENSTROM^S MACROGLOBULINAEMIA
     Route: 048
     Dates: start: 20151019
  11. CAFFEINE. [Suspect]
     Active Substance: CAFFEINE
     Indication: PRODUCT USED FOR UNKNOWN INDICATION
  12. BIOTIN [Concomitant]
     Active Substance: BIOTIN
  13. FERREX 150 FORTE [Concomitant]
     Active Substance: CYANOCOBALAMIN\FOLIC ACID\IRON
  14. CAMELLIA SINENSIS [Concomitant]
     Active Substance: GREEN TEA LEAF
  15. LYSINE [Concomitant]
     Active Substance: LYSINE
  16. VITAMIN B6 [Concomitant]
     Active Substance: PYRIDOXINE HYDROCHLORIDE
  17. SELENIUM [Concomitant]
     Active Substance: SELENIUM
  18. IMBRUVICA [Suspect]
     Active Substance: IBRUTINIB
     Route: 048
  19. GARLIC. [Concomitant]
     Active Substance: GARLIC
  20. CALCIUM [Concomitant]
     Active Substance: CALCIUM

REACTIONS (5)
  - Atrial fibrillation [Unknown]
  - Weight increased [Not Recovered/Not Resolved]
  - Palpitations [Not Recovered/Not Resolved]
  - Adverse event [Unknown]
  - Laboratory test abnormal [Unknown]

NARRATIVE: CASE EVENT DATE: 201510
